FAERS Safety Report 22343992 (Version 6)
Quarter: 2023Q4

REPORT INFORMATION
  Report Type: Spontaneous
  Country: US (occurrence: US)
  Receive Date: 20230519
  Receipt Date: 20231113
  Transmission Date: 20240110
  Serious: Yes (Hospitalization)
  Sender: FDA-Public Use
  Company Number: US-PFIZER INC-PV202300087841

PATIENT
  Age: 8 Year
  Sex: Female
  Weight: 54.422 kg

DRUGS (2)
  1. GENOTROPIN [Suspect]
     Active Substance: SOMATROPIN
     Indication: Growth retardation
     Dosage: 0.7 MG
  2. GENOTROPIN [Suspect]
     Active Substance: SOMATROPIN
     Dosage: 0.8 UNK
     Dates: start: 2016

REACTIONS (6)
  - Drug dose omission by device [Recovered/Resolved]
  - Device delivery system issue [Recovered/Resolved]
  - Device use issue [Recovered/Resolved]
  - Needle issue [Recovered/Resolved]
  - Device malfunction [Recovered/Resolved]
  - Device breakage [Unknown]
